FAERS Safety Report 4279265-5 (Version None)
Quarter: 2004Q1

REPORT INFORMATION
  Report Type: 
  Country: None (occurrence: None)
  Receive Date: 20040123
  Receipt Date: 20040112
  Transmission Date: 20041129
  Serious: Yes (Hospitalization)
  Sender: FDA-Public Use
  Company Number: K200400049

PATIENT
  Age: 69 Year
  Sex: Male
  Weight: 81.2 kg

DRUGS (5)
  1. FLORINEF [Suspect]
     Indication: HYPERKALAEMIA
     Dosage: 0.1 MG, QD, ORAL
     Route: 048
     Dates: end: 20030601
  2. EPOGEN [Concomitant]
  3. LIPITOR [Concomitant]
  4. PLENDIL [Concomitant]
  5. MONOPRILO (FOSINOPRIL SODIUM) [Concomitant]

REACTIONS (3)
  - CONDITION AGGRAVATED [None]
  - DIALYSIS [None]
  - RENAL FAILURE [None]
